FAERS Safety Report 21418456 (Version 2)
Quarter: 2022Q4

REPORT INFORMATION
  Report Type: Report from Study
  Country: BR (occurrence: BR)
  Receive Date: 20221006
  Receipt Date: 20221017
  Transmission Date: 20230112
  Serious: Yes (Other)
  Sender: FDA-Public Use
  Company Number: BR-NOVARTISPH-NVSC2022BR224557

PATIENT
  Sex: Male
  Weight: 58 kg

DRUGS (5)
  1. CYCLOSPORINE [Suspect]
     Active Substance: CYCLOSPORINE
     Indication: Product used for unknown indication
     Dosage: UNK
     Route: 065
  2. CYCLOSPORINE [Suspect]
     Active Substance: CYCLOSPORINE
     Dosage: 1 DOSAGE FORM, BID (TABLET DISCONTINUED 3 MONTHS AGO))
     Route: 048
     Dates: start: 2021
  3. METHOTREXATE SODIUM [Suspect]
     Active Substance: METHOTREXATE SODIUM
     Indication: Product used for unknown indication
     Dosage: UNK
     Route: 065
  4. HYDROXYCHLOROQUINE SULFATE [Concomitant]
     Active Substance: HYDROXYCHLOROQUINE SULFATE
     Indication: Systemic lupus erythematosus
     Dosage: 1 DOSAGE FORM, QD
     Route: 065
     Dates: start: 2008
  5. THALIDOMIDE [Concomitant]
     Active Substance: THALIDOMIDE
     Indication: Product used for unknown indication
     Dosage: 1 DOSAGE FORM, BID (STARTED 4 MONTHS AGO)
     Route: 048

REACTIONS (7)
  - Rheumatoid arthritis [Unknown]
  - Diabetes mellitus [Recovering/Resolving]
  - Rheumatoid factor negative [Unknown]
  - Psoriasis [Unknown]
  - Cardiac disorder [Recovering/Resolving]
  - C-reactive protein increased [Unknown]
  - Therapy non-responder [Unknown]

NARRATIVE: CASE EVENT DATE: 20210101
